FAERS Safety Report 20229308 (Version 4)
Quarter: 2022Q2

REPORT INFORMATION
  Report Type: Report from Study
  Country: ZA (occurrence: ZA)
  Receive Date: 20211225
  Receipt Date: 20220401
  Transmission Date: 20220721
  Serious: Yes (Other)
  Sender: FDA-Public Use
  Company Number: ZA-NOVARTISPH-NVSC2021ZA291841

PATIENT
  Age: 63 Year
  Sex: Female

DRUGS (4)
  1. COSENTYX [Suspect]
     Active Substance: SECUKINUMAB
     Indication: Ankylosing spondylitis
     Dosage: 150 MG, QW
     Route: 058
     Dates: start: 20211124
  2. COSENTYX [Suspect]
     Active Substance: SECUKINUMAB
     Dosage: UNK (4TH INJECTION)
     Route: 065
     Dates: start: 20211215
  3. COSENTYX [Suspect]
     Active Substance: SECUKINUMAB
     Dosage: 150 MG, QW
     Route: 058
  4. COSENTYX [Suspect]
     Active Substance: SECUKINUMAB
     Dosage: 150 MG, QMO
     Route: 058
     Dates: start: 20211124

REACTIONS (10)
  - Kidney infection [Unknown]
  - Malaise [Unknown]
  - Back pain [Unknown]
  - Musculoskeletal chest pain [Unknown]
  - Ankylosing spondylitis [Not Recovered/Not Resolved]
  - Myocardial infarction [Unknown]
  - Pain [Unknown]
  - C-reactive protein increased [Unknown]
  - Condition aggravated [Unknown]
  - Drug ineffective [Unknown]

NARRATIVE: CASE EVENT DATE: 20211217
